FAERS Safety Report 15336077 (Version 1)
Quarter: 2018Q3

REPORT INFORMATION
  Report Type: Report from Study
  Country: US (occurrence: US)
  Receive Date: 20180830
  Receipt Date: 20180830
  Transmission Date: 20181010
  Serious: No
  Sender: FDA-Public Use
  Company Number: US-ALEXION PHARMACEUTICALS INC.-A201810865

PATIENT
  Sex: Male

DRUGS (1)
  1. SOLIRIS [Suspect]
     Active Substance: ECULIZUMAB
     Indication: PRODUCT USED FOR UNKNOWN INDICATION
     Route: 065

REACTIONS (7)
  - Rash papular [Unknown]
  - Altered visual depth perception [Unknown]
  - Erythema [Unknown]
  - Oedema peripheral [Not Recovered/Not Resolved]
  - Dysgeusia [Unknown]
  - Weight decreased [Unknown]
  - Platelet count abnormal [Unknown]
